FAERS Safety Report 4413695-3 (Version None)
Quarter: 2004Q2

REPORT INFORMATION
  Report Type: 
  Country: None (occurrence: None)
  Receive Date: 20040630
  Receipt Date: 20040406
  Transmission Date: 20050107
  Serious: No
  Sender: FDA-Public Use
  Company Number: 04P-163-0256647-00

PATIENT
  Age: 64 Year
  Sex: Female
  Weight: 97.5234 kg

DRUGS (10)
  1. HUMIRA [Suspect]
     Indication: RHEUMATOID ARTHRITIS
     Dosage: 40 MG, 1 IN 2 WK, SUBCUTANEOUS
     Route: 058
     Dates: start: 20031202
  2. RISEDRONATE SODIUM [Concomitant]
  3. LEFLUNOMIDE [Concomitant]
  4. DIOVAN HCT [Concomitant]
  5. FOLIC ACID [Concomitant]
  6. ATORVASTATIN CALCIUM [Concomitant]
  7. CONJUGATED ESTROGEN [Concomitant]
  8. CALCIUM WITH VITAMIN D [Concomitant]
  9. MULTI-VITAMINS [Concomitant]
  10. OMEGA FISH OIL [Concomitant]

REACTIONS (1)
  - INJECTION SITE HAEMORRHAGE [None]
